FAERS Safety Report 7047328-7 (Version None)
Quarter: 2010Q4

REPORT INFORMATION
  Report Type: 
  Country: None (occurrence: None)
  Receive Date: 20101014
  Receipt Date: 20101014
  Transmission Date: 20110411
  Serious: Yes (Other)
  Sender: FDA-Public Use
  Company Number: None

PATIENT
  Age: 69 Year
  Sex: Male
  Weight: 131.9967 kg

DRUGS (13)
  1. SYMLIN [Suspect]
     Indication: DIABETES MELLITUS
     Dosage: 360 MCG TID SQ
     Route: 058
     Dates: start: 20100603, end: 20101007
  2. HUMALOG [Concomitant]
  3. LANTUS [Concomitant]
  4. VITAMIN D [Concomitant]
  5. VITAMIN B COMPLEX CAP [Concomitant]
  6. SPIRIVA [Concomitant]
  7. VERAPAMIL [Concomitant]
  8. FUROSEMIDE [Concomitant]
  9. KLOR-CON [Concomitant]
  10. PULMICORT [Concomitant]
  11. LIPITOR [Concomitant]
  12. LISINOPRIL [Concomitant]
  13. COUMADIN [Concomitant]

REACTIONS (2)
  - METASTASES TO BONE [None]
  - PROSTATE CANCER RECURRENT [None]
